FAERS Safety Report 12339986 (Version 40)
Quarter: 2020Q1

REPORT INFORMATION
  Report Type: Spontaneous
  Country: CA (occurrence: CA)
  Receive Date: 20160506
  Receipt Date: 20200226
  Transmission Date: 20200409
  Serious: Yes (Hospitalization, Other)
  Sender: FDA-Public Use
  Company Number: CA-ROCHE-1753265

PATIENT
  Age: 68 Year
  Sex: Male

DRUGS (33)
  1. XOLAIR [Suspect]
     Active Substance: OMALIZUMAB
     Route: 058
     Dates: start: 20170419
  2. XOLAIR [Suspect]
     Active Substance: OMALIZUMAB
     Route: 058
     Dates: start: 20170531
  3. XOLAIR [Suspect]
     Active Substance: OMALIZUMAB
     Route: 058
     Dates: start: 20191113
  4. PREDNISONE. [Concomitant]
     Active Substance: PREDNISONE
     Indication: LOWER RESPIRATORY TRACT INFECTION
     Route: 065
  5. XOLAIR [Suspect]
     Active Substance: OMALIZUMAB
     Route: 058
     Dates: start: 20171017
  6. XOLAIR [Suspect]
     Active Substance: OMALIZUMAB
     Route: 058
     Dates: start: 20191101
  7. XOLAIR [Suspect]
     Active Substance: OMALIZUMAB
     Route: 058
     Dates: start: 20191227
  8. ZENHALE [Concomitant]
     Active Substance: FORMOTEROL FUMARATE\MOMETASONE FUROATE
     Indication: PRODUCT USED FOR UNKNOWN INDICATION
     Route: 055
     Dates: start: 201508, end: 201703
  9. ACLIDINIUM BROMIDE. [Concomitant]
     Active Substance: ACLIDINIUM BROMIDE
     Indication: PRODUCT USED FOR UNKNOWN INDICATION
     Route: 055
     Dates: start: 201501, end: 201703
  10. XOLAIR [Suspect]
     Active Substance: OMALIZUMAB
     Route: 058
     Dates: start: 20180523
  11. XOLAIR [Suspect]
     Active Substance: OMALIZUMAB
     Route: 058
     Dates: start: 20170320
  12. XOLAIR [Suspect]
     Active Substance: OMALIZUMAB
     Route: 058
     Dates: start: 20170811
  13. XOLAIR [Suspect]
     Active Substance: OMALIZUMAB
     Route: 058
     Dates: start: 20181224
  14. XOLAIR [Suspect]
     Active Substance: OMALIZUMAB
     Route: 058
     Dates: start: 20160629
  15. XOLAIR [Suspect]
     Active Substance: OMALIZUMAB
     Route: 058
     Dates: start: 20170116
  16. XOLAIR [Suspect]
     Active Substance: OMALIZUMAB
     Route: 058
     Dates: start: 20170503
  17. XOLAIR [Suspect]
     Active Substance: OMALIZUMAB
     Route: 058
     Dates: start: 20170518
  18. XOLAIR [Suspect]
     Active Substance: OMALIZUMAB
     Route: 058
     Dates: start: 20170922
  19. VENTOLIN [Concomitant]
     Active Substance: ALBUTEROL SULFATE
     Indication: PRODUCT USED FOR UNKNOWN INDICATION
     Route: 055
     Dates: start: 1980
  20. XOLAIR [Suspect]
     Active Substance: OMALIZUMAB
     Route: 058
     Dates: start: 20170630
  21. XOLAIR [Suspect]
     Active Substance: OMALIZUMAB
     Route: 058
     Dates: start: 20170728
  22. XOLAIR [Suspect]
     Active Substance: OMALIZUMAB
     Route: 058
     Dates: start: 20170825
  23. XOLAIR [Suspect]
     Active Substance: OMALIZUMAB
     Route: 058
     Dates: start: 20180606
  24. XOLAIR [Suspect]
     Active Substance: OMALIZUMAB
     Indication: ASTHMA
     Route: 058
     Dates: start: 20151125
  25. XOLAIR [Suspect]
     Active Substance: OMALIZUMAB
     Route: 058
     Dates: start: 20170714
  26. XOLAIR [Suspect]
     Active Substance: OMALIZUMAB
     Route: 058
     Dates: start: 20170907
  27. XOLAIR [Suspect]
     Active Substance: OMALIZUMAB
     Route: 058
     Dates: start: 20180217
  28. PREDNISONE. [Concomitant]
     Active Substance: PREDNISONE
     Indication: ASTHMA
     Dosage: REDUCED BY 10 MG EACH WEEK TO HIS CURRENT BASELINE OF 10 MG DAILY
     Route: 065
     Dates: start: 20160106
  29. XOLAIR [Suspect]
     Active Substance: OMALIZUMAB
     Route: 058
     Dates: start: 20170228
  30. XOLAIR [Suspect]
     Active Substance: OMALIZUMAB
     Route: 058
     Dates: start: 20191016
  31. PREDNISONE. [Concomitant]
     Active Substance: PREDNISONE
     Route: 065
     Dates: start: 201506
  32. THEO-DUR [Concomitant]
     Active Substance: THEOPHYLLINE ANHYDROUS
     Indication: PRODUCT USED FOR UNKNOWN INDICATION
     Route: 048
     Dates: start: 2013
  33. ATROVENT [Concomitant]
     Active Substance: IPRATROPIUM BROMIDE
     Indication: PRODUCT USED FOR UNKNOWN INDICATION
     Route: 055
     Dates: start: 2013

REACTIONS (41)
  - Chemical poisoning [Unknown]
  - Forced vital capacity decreased [Unknown]
  - Dyspnoea exertional [Unknown]
  - Sensitivity to weather change [Unknown]
  - Asthenia [Unknown]
  - Blood pressure increased [Recovering/Resolving]
  - Pneumothorax [Recovering/Resolving]
  - Pulmonary congestion [Unknown]
  - Respiratory tract congestion [Unknown]
  - Lower respiratory tract infection [Unknown]
  - Productive cough [Unknown]
  - Dyspnoea [Recovering/Resolving]
  - Sputum discoloured [Unknown]
  - Dehydration [Unknown]
  - Forced expiratory volume decreased [Unknown]
  - Abdominal pain upper [Recovering/Resolving]
  - Chest pain [Unknown]
  - Productive cough [Unknown]
  - Sputum increased [Unknown]
  - Fatigue [Unknown]
  - Oxygen saturation decreased [Unknown]
  - Wheezing [Not Recovered/Not Resolved]
  - Intestinal polyp [Recovering/Resolving]
  - Unresponsive to stimuli [Unknown]
  - Disturbance in attention [Unknown]
  - Road traffic accident [Unknown]
  - Abdominal discomfort [Recovering/Resolving]
  - Emotional distress [Unknown]
  - Heart rate increased [Unknown]
  - Pneumonia [Unknown]
  - Malaise [Not Recovered/Not Resolved]
  - Respiratory rate decreased [Unknown]
  - Asthma [Recovering/Resolving]
  - Influenza [Recovering/Resolving]
  - Rales [Recovering/Resolving]
  - Pallor [Unknown]
  - Nasopharyngitis [Unknown]
  - Coronary artery occlusion [Unknown]
  - Myocardial infarction [Unknown]
  - Hypotension [Unknown]
  - Respiratory distress [Unknown]

NARRATIVE: CASE EVENT DATE: 20160104
